FAERS Safety Report 7686675-2 (Version None)
Quarter: 2011Q3

REPORT INFORMATION
  Report Type: 
  Country: None (occurrence: None)
  Receive Date: 20110816
  Receipt Date: 20110720
  Transmission Date: 20111222
  Serious: No
  Sender: FDA-Public Use
  Company Number: US-BAYER-2011-059281

PATIENT
  Age: 31 Year
  Sex: Female

DRUGS (4)
  1. BETASERON [Suspect]
     Dosage: 4 MIU, QOD
     Route: 058
  2. BETASERON [Suspect]
     Dosage: 8 MIU, QOD
     Route: 058
  3. BETASERON [Suspect]
     Indication: RELAPSING-REMITTING MULTIPLE SCLEROSIS
     Dosage: 2 MIU, QOD
     Route: 058
     Dates: start: 20110623, end: 20110623
  4. BETASERON [Suspect]
     Dosage: 6 MIU, QOD
     Route: 058
     Dates: start: 20110723

REACTIONS (9)
  - PAIN IN EXTREMITY [None]
  - INJECTION SITE HAEMORRHAGE [None]
  - INJECTION SITE ERYTHEMA [None]
  - INJECTION SITE PAIN [None]
  - INFLUENZA LIKE ILLNESS [None]
  - PAIN [None]
  - DRY THROAT [None]
  - MUSCULOSKELETAL PAIN [None]
  - INJECTION SITE RASH [None]
